FAERS Safety Report 6509491-3 (Version None)
Quarter: 2009Q4

REPORT INFORMATION
  Report Type: 
  Country: None (occurrence: None)
  Receive Date: 20091222
  Receipt Date: 20091210
  Transmission Date: 20100525
  Serious: Yes (Other)
  Sender: FDA-Public Use
  Company Number: US-BRISTOL-MYERS SQUIBB COMPANY-14892368

PATIENT
  Age: 61 Year
  Sex: Female

DRUGS (9)
  1. ENTECAVIR [Suspect]
     Indication: HEPATITIS B
     Route: 048
     Dates: start: 20080212
  2. METFORMIN HCL [Concomitant]
     Indication: DIABETES MELLITUS
     Route: 048
     Dates: start: 19930101
  3. LANTUS [Concomitant]
     Indication: DIABETES MELLITUS
     Dosage: 1 DF=40 UNTIS
     Route: 058
     Dates: start: 20081014
  4. PLAVIX [Concomitant]
     Indication: CEREBROVASCULAR ACCIDENT PROPHYLAXIS
     Dates: start: 20081120
  5. ASPIRIN [Concomitant]
     Indication: CEREBROVASCULAR ACCIDENT PROPHYLAXIS
     Dates: start: 20081120
  6. BENICAR [Concomitant]
     Indication: HYPERTENSION
     Dates: start: 20081120
  7. GLYBURIDE [Concomitant]
     Indication: DIABETES MELLITUS
     Dates: start: 20081120
  8. MICARDIS [Concomitant]
     Indication: HYPERTENSION
     Dates: start: 20081202
  9. LOMOTIL [Concomitant]
     Indication: DIARRHOEA
     Route: 048
     Dates: start: 20090518

REACTIONS (2)
  - BLOOD AMYLASE INCREASED [None]
  - PANCREATITIS [None]
